FAERS Safety Report 14273746 (Version 1)
Quarter: 2017Q4

REPORT INFORMATION
  Report Type: Report from Study
  Country: None (occurrence: AU)
  Receive Date: 20171211
  Receipt Date: 20171211
  Transmission Date: 20180321
  Serious: Yes (Other)
  Sender: FDA-Public Use
  Company Number: AU-ABBVIE-17K-008-2187796-00

PATIENT
  Age: 71 Year
  Sex: Male

DRUGS (2)
  1. DUODOPA [Suspect]
     Active Substance: CARBIDOPA\LEVODOPA
     Dosage: 16HRLY INFUSION
     Route: 050
     Dates: start: 20171207
  2. DUODOPA [Suspect]
     Active Substance: CARBIDOPA\LEVODOPA
     Indication: PARKINSON^S DISEASE
     Dosage: 16HRLY INFUSION
     Route: 050
     Dates: start: 20131105

REACTIONS (4)
  - Loss of personal independence in daily activities [Unknown]
  - Blindness [Unknown]
  - Unintentional medical device removal [Recovered/Resolved]
  - Stoma site extravasation [Unknown]

NARRATIVE: CASE EVENT DATE: 20171205
